FAERS Safety Report 4831429-5 (Version None)
Quarter: 2005Q4

REPORT INFORMATION
  Report Type: 
  Country: None (occurrence: None)
  Receive Date: 20051116
  Receipt Date: 20051109
  Transmission Date: 20060501
  Serious: Yes (Other)
  Sender: FDA-Public Use
  Company Number: 430017M05USA

PATIENT
  Age: 41 Year
  Sex: Female
  Weight: 90.7194 kg

DRUGS (3)
  1. NOVANTRONE [Suspect]
     Indication: MULTIPLE SCLEROSIS
     Dates: end: 20050101
  2. BETASERON [Concomitant]
  3. SOLU-MEDROL [Concomitant]

REACTIONS (4)
  - ACUTE PROMYELOCYTIC LEUKAEMIA [None]
  - EXTRAVASATION [None]
  - SKIN EXFOLIATION [None]
  - WRONG TECHNIQUE IN DRUG USAGE PROCESS [None]
